FAERS Safety Report 11802060 (Version 7)
Quarter: 2017Q4

REPORT INFORMATION
  Report Type: Spontaneous
  Country: HU (occurrence: HU)
  Receive Date: 20151204
  Receipt Date: 20171004
  Transmission Date: 20180320
  Serious: Yes (Hospitalization, Other)
  Sender: FDA-Public Use
  Company Number: HU-PFIZER INC-2015344360

PATIENT
  Age: 35 Year
  Sex: Female

DRUGS (3)
  1. SUTENT [Suspect]
     Active Substance: SUNITINIB MALATE
     Indication: RENAL CANCER METASTATIC
     Dosage: 50 MG, DAILY
     Route: 048
     Dates: start: 20150508
  2. SUTENT [Suspect]
     Active Substance: SUNITINIB MALATE
     Dosage: ON THE EVEN DAYS 50 MG SUTENT, ON THE UNEVEN DAYS 25 MG (14TH CYCLE) ACCORDING TO THE 4/2 SCHEMA
     Route: 048
  3. SUTENT [Suspect]
     Active Substance: SUNITINIB MALATE
     Dosage: ON THE EVEN DAYS 50 MG SUTENT, ON THE UNEVEN DAYS 25 MG (6TH CYCLE) ACCORDING TO THE 4/2 SCHEMA
     Route: 048
     Dates: start: 20151212

REACTIONS (10)
  - Neoplasm progression [Unknown]
  - Hyperchlorhydria [Recovered/Resolved]
  - Pleural effusion [Recovered/Resolved]
  - Nephrotic syndrome [Recovered/Resolved]
  - Dysphonia [Not Recovered/Not Resolved]
  - Thrombocytopenia [Recovered/Resolved]
  - Hypothyroidism [Recovered/Resolved]
  - Stomatitis [Recovered/Resolved]
  - Nausea [Recovered/Resolved]
  - Blood pressure increased [Recovered/Resolved]

NARRATIVE: CASE EVENT DATE: 20151220
